FAERS Safety Report 9210958 (Version 2)
Quarter: 2013Q4

REPORT INFORMATION
  Report Type: Spontaneous
  Country: US (occurrence: US)
  Receive Date: 20130404
  Receipt Date: 20131021
  Transmission Date: 20140711
  Serious: Yes (Other)
  Sender: FDA-Public Use
  Company Number: US-BAYER-2013-040223

PATIENT
  Age: 18 Year
  Sex: Female
  Weight: 68.03 kg

DRUGS (2)
  1. YAZ [Suspect]
     Indication: PREMENSTRUAL SYNDROME
     Dosage: UNK
     Dates: start: 2008, end: 2009
  2. IBUPROFEN [Concomitant]
     Dosage: DAILY

REACTIONS (7)
  - Nephropathy [None]
  - Pain [None]
  - Injury [None]
  - Emotional distress [None]
  - Anxiety [None]
  - Psychological trauma [None]
  - Gallbladder non-functioning [None]
